FAERS Safety Report 9736736 (Version 3)
Quarter: 2014Q2

REPORT INFORMATION
  Report Type: Report from Study
  Country: US (occurrence: US)
  Receive Date: 20131206
  Receipt Date: 20140508
  Transmission Date: 20141212
  Serious: Yes (Hospitalization)
  Sender: FDA-Public Use
  Company Number: US-US-EMD SERONO, INC.-7255074

PATIENT
  Age: 51 Year
  Sex: Female

DRUGS (2)
  1. REBIF [Suspect]
     Indication: MULTIPLE SCLEROSIS
     Route: 058
     Dates: start: 20130408, end: 201311
  2. REBIF [Suspect]
     Dosage: 0.1 CC TO 0.2 CC
     Route: 058

REACTIONS (4)
  - Endometriosis [Recovered/Resolved]
  - Vaginal abscess [Recovered/Resolved]
  - Urticaria [Recovered/Resolved]
  - Influenza like illness [Not Recovered/Not Resolved]
